FAERS Safety Report 9637127 (Version 2)
Quarter: 2013Q4

REPORT INFORMATION
  Report Type: Spontaneous
  Country: US (occurrence: US)
  Receive Date: 20131022
  Receipt Date: 20131025
  Transmission Date: 20140711
  Serious: Yes (Life-Threatening, Hospitalization, Other)
  Sender: FDA-Public Use
  Company Number: US-UCBSA-100338

PATIENT
  Age: 41 Year
  Sex: Female
  Weight: 113.35 kg

DRUGS (17)
  1. KEPPRA [Suspect]
     Indication: EPILEPSY
     Dates: start: 2000
  2. FLOVENT [Suspect]
     Indication: ASTHMA
     Dosage: SINCE 5 YEARS; 220 MCG AND 110 MCG AT 2 PUFFS TWICE DAILY/ INHALED
  3. FLONASE [Suspect]
     Indication: SINUSITIS
     Dosage: AQUEOUS SPRAY, 1 SPRAY IN EACH NOSTRIL TWICE DAILY/INTRANASAL
     Dates: start: 2003
  4. FLONASE [Suspect]
     Indication: SINUSITIS
     Dosage: AQUEOUS SPRAY, 1 SPRAY IN EACH NOSTRIL ONCE DAILY/ INTRANASAL
     Dates: end: 20121215
  5. SINGULAIR [Suspect]
     Indication: ASTHMA
     Dates: start: 2004
  6. SINGULAIR [Suspect]
     Indication: SINUS CONGESTION
     Dates: start: 2004
  7. TRAZADONE [Suspect]
     Indication: INSOMNIA
     Dosage: 100 MG AS REQUIRED
     Dates: start: 2002
  8. PRISTIQ [Suspect]
     Indication: POST-TRAUMATIC STRESS DISORDER
     Dates: start: 2004
  9. BIAXIN [Suspect]
     Indication: BRONCHITIS
     Dosage: UNKNOWN DOSE
     Dates: start: 20121201, end: 20121205
  10. ALBUTEROL INHALER [Suspect]
     Indication: ASTHMA
     Dosage: 1 - 2 PUFFS AS REQUIRED/ INHALED
     Dates: start: 2003
  11. SUDAFED [Suspect]
     Indication: SINUS CONGESTION
     Dosage: DOSE AS NEEDED
     Dates: start: 2010
  12. TEMAZEPAM [Concomitant]
     Dosage: UNKNOWN DOSE
  13. FIORICET [Concomitant]
     Dosage: UNKNOWN DOSE
  14. VITAMIN D [Concomitant]
     Dosage: UNKNOWN DOSE
  15. MULTIVITAMIN [Concomitant]
     Dosage: UNKNOWN DOSE
  16. AMOXICILLIN TRIHYDRATE [Concomitant]
     Dosage: UNKNOWN DOSE
  17. PREDNISONE [Concomitant]
     Dosage: UNKNOWN DOSE

REACTIONS (5)
  - Epistaxis [Unknown]
  - Pre-eclampsia [Recovered/Resolved]
  - Infection [Unknown]
  - Pyrexia [Unknown]
  - Pregnancy [Recovered/Resolved]
